FAERS Safety Report 9476311 (Version 5)
Quarter: 2013Q4

REPORT INFORMATION
  Report Type: Report from Study
  Country: US (occurrence: US)
  Receive Date: 20130826
  Receipt Date: 20131108
  Transmission Date: 20140711
  Serious: Yes (Hospitalization)
  Sender: FDA-Public Use
  Company Number: US-JNJFOC-20130809317

PATIENT
  Age: 18 Year
  Sex: Female
  Weight: 64.7 kg

DRUGS (21)
  1. REMICADE [Suspect]
     Indication: CROHN^S DISEASE
     Route: 042
     Dates: start: 20110820
  2. REMICADE [Suspect]
     Indication: CROHN^S DISEASE
     Route: 042
     Dates: start: 20120816
  3. REMICADE [Suspect]
     Indication: CROHN^S DISEASE
     Route: 042
     Dates: start: 20121218
  4. REMICADE [Suspect]
     Indication: CROHN^S DISEASE
     Route: 042
     Dates: start: 20130411
  5. REMICADE [Suspect]
     Indication: CROHN^S DISEASE
     Route: 042
     Dates: start: 20120206
  6. AZATHIOPRINE [Concomitant]
     Route: 065
     Dates: start: 20110901
  7. AZATHIOPRINE [Concomitant]
     Route: 065
     Dates: start: 20110902
  8. HUMIRA [Concomitant]
     Route: 065
     Dates: start: 20130808
  9. HUMIRA [Concomitant]
     Route: 065
  10. VITAMIN D3 [Concomitant]
     Route: 065
  11. IRON [Concomitant]
     Route: 065
  12. PREVACID [Concomitant]
     Route: 065
  13. PREVACID [Concomitant]
     Route: 065
  14. KENALOG [Concomitant]
     Route: 065
  15. ACETAMINOPHEN [Concomitant]
     Indication: PREMEDICATION
     Route: 065
  16. COLACE [Concomitant]
     Route: 065
  17. NORCO [Concomitant]
     Route: 065
  18. HYDROCORTISONE [Concomitant]
     Route: 065
  19. MULTIVITAMINS [Concomitant]
     Route: 065
  20. NYSTATIN [Concomitant]
     Route: 065
  21. ANTIHISTAMINES [Concomitant]
     Indication: PREMEDICATION
     Route: 065

REACTIONS (1)
  - Gastric ulcer [Recovered/Resolved]
